FAERS Safety Report 12243461 (Version 2)
Quarter: 2016Q2

REPORT INFORMATION
  Report Type: Spontaneous
  Country: PE (occurrence: PE)
  Receive Date: 20160406
  Receipt Date: 20160525
  Transmission Date: 20160815
  Serious: Yes (Other)
  Sender: FDA-Public Use
  Company Number: PE-PFIZER INC-2016192443

PATIENT
  Age: 89 Year
  Sex: Female

DRUGS (3)
  1. XALATAN [Suspect]
     Active Substance: LATANOPROST
     Dosage: UNK
  2. XALATAN [Suspect]
     Active Substance: LATANOPROST
     Indication: GLAUCOMA
     Dosage: 1 GTT, 1X/DAY ON EACH EYE
     Route: 047
  3. ARTIFICIAL TEARS /00445101/ [Concomitant]

REACTIONS (2)
  - General physical condition abnormal [Recovered/Resolved]
  - Influenza [Recovered/Resolved]
